FAERS Safety Report 5703405-1 (Version None)
Quarter: 2008Q2

REPORT INFORMATION
  Report Type: 
  Country: None (occurrence: None)
  Receive Date: 20080411
  Receipt Date: 20080328
  Transmission Date: 20081010
  Serious: Yes (Death, Hospitalization)
  Sender: FDA-Public Use
  Company Number: JP-GENENTECH-255161

PATIENT
  Sex: Male

DRUGS (8)
  1. BEVACIZUMAB [Suspect]
     Indication: COLON CANCER METASTATIC
     Dosage: 5 MG/KG, UNK
     Route: 041
     Dates: start: 20070710, end: 20070731
  2. OXALIPLATIN [Suspect]
     Indication: COLON CANCER METASTATIC
     Dosage: 82.8 MG/M2, UNK
     Route: 041
     Dates: start: 20070710, end: 20070911
  3. FLUOROURACIL [Suspect]
     Indication: COLON CANCER METASTATIC
     Dosage: 400 MG/M2, UNK
     Route: 042
     Dates: start: 20070710, end: 20071025
  4. ISOVORIN [Suspect]
     Indication: COLON CANCER METASTATIC
     Dosage: 100 MG/M2, UNK
     Route: 041
     Dates: start: 20070710, end: 20071023
  5. IRINOTECAN HYDROCHLORIDE [Concomitant]
     Indication: DRUG USE FOR UNKNOWN INDICATION
     Dates: start: 20071002, end: 20071023
  6. ACTOS [Concomitant]
     Indication: DRUG USE FOR UNKNOWN INDICATION
  7. BLOPRESS [Concomitant]
     Indication: DRUG USE FOR UNKNOWN INDICATION
  8. LOXONIN [Concomitant]
     Indication: DRUG USE FOR UNKNOWN INDICATION

REACTIONS (1)
  - PATHOLOGICAL FRACTURE [None]
